FAERS Safety Report 7114532-9 (Version None)
Quarter: 2010Q4

REPORT INFORMATION
  Report Type: 
  Country: None (occurrence: None)
  Receive Date: 20101119
  Receipt Date: 20101109
  Transmission Date: 20110411
  Serious: Yes (Other)
  Sender: FDA-Public Use
  Company Number: US-MERCK-1011USA01510

PATIENT

DRUGS (1)
  1. SINGULAIR [Suspect]
     Route: 048

REACTIONS (6)
  - ABNORMAL BEHAVIOUR [None]
  - AGGRESSION [None]
  - COMPLETED SUICIDE [None]
  - PSYCHIATRIC SYMPTOM [None]
  - SLEEP TERROR [None]
  - SUICIDE ATTEMPT [None]
